FAERS Safety Report 9138954 (Version 2)
Quarter: 2013Q1

REPORT INFORMATION
  Report Type: Spontaneous
  Country: US (occurrence: US)
  Receive Date: 20130305
  Receipt Date: 20130319
  Transmission Date: 20140127
  Serious: Yes (Other)
  Sender: FDA-Public Use
  Company Number: US-PFIZER INC-2013076294

PATIENT
  Age: 58 Year
  Sex: Female
  Weight: 56.69 kg

DRUGS (1)
  1. NEURONTIN [Suspect]
     Dosage: 300 MG, UNK

REACTIONS (3)
  - Heart rate increased [Unknown]
  - Hyperhidrosis [Unknown]
  - Abnormal behaviour [Unknown]
